FAERS Safety Report 6839318-1 (Version None)
Quarter: 2010Q3

REPORT INFORMATION
  Report Type: 
  Country: None (occurrence: None)
  Receive Date: 20100714
  Receipt Date: 20100701
  Transmission Date: 20110219
  Serious: No
  Sender: FDA-Public Use
  Company Number: PHHY2010JP38233

PATIENT
  Age: 63 Year
  Sex: Female

DRUGS (2)
  1. FAMVIR [Suspect]
     Dosage: 500 MG, TID
     Route: 048
     Dates: start: 20100526, end: 20100528
  2. LOXOPROFEN SODIUM [Concomitant]
     Dosage: UNK
     Dates: start: 20100526, end: 20100528

REACTIONS (3)
  - DIZZINESS [None]
  - MALAISE [None]
  - SOMNOLENCE [None]
